FAERS Safety Report 19661326 (Version 2)
Quarter: 2021Q3

REPORT INFORMATION
  Report Type: Spontaneous
  Country: DE (occurrence: DE)
  Receive Date: 20210805
  Receipt Date: 20210819
  Transmission Date: 20211014
  Serious: No
  Sender: FDA-Public Use
  Company Number: DE-LUPIN PHARMACEUTICALS INC.-2021-13558

PATIENT
  Age: 2 Year
  Sex: Female

DRUGS (3)
  1. LEVETIRACETAM?HORMOSAN [Suspect]
     Active Substance: LEVETIRACETAM
     Dosage: UNK (INJECTION) 100MG/300ML (300 ML PACKAGE)
     Route: 065
     Dates: start: 20210723
  2. SULTIAME [Concomitant]
     Active Substance: SULTHIAME
     Indication: EPILEPSY
     Dosage: 3 MILLILITER, BID
     Route: 065
  3. LEVETIRACETAM?HORMOSAN [Suspect]
     Active Substance: LEVETIRACETAM
     Indication: EPILEPSY
     Dosage: UNK (SMALL BOTTLE)
     Route: 065
     Dates: start: 202103

REACTIONS (3)
  - No adverse event [Unknown]
  - Incorrect dose administered [Unknown]
  - Product use issue [Unknown]

NARRATIVE: CASE EVENT DATE: 20210723
